FAERS Safety Report 4421781-7 (Version None)
Quarter: 2004Q3

REPORT INFORMATION
  Report Type: 
  Country: None (occurrence: None)
  Receive Date: 20040806
  Receipt Date: 20040715
  Transmission Date: 20050211
  Serious: Yes (Death)
  Sender: FDA-Public Use
  Company Number: USA040772708

PATIENT
  Age: 73 Year
  Sex: Female

DRUGS (3)
  1. GEMZAR [Suspect]
     Indication: METASTASES TO BONE
     Dosage: 1 G/L WEEK
     Route: 042
     Dates: start: 20010601
  2. GEMZAR [Suspect]
     Indication: NON-SMALL CELL LUNG CANCER
     Dosage: 1 G/L WEEK
     Route: 042
     Dates: start: 20010601
  3. CARBOPLATIN [Concomitant]

REACTIONS (3)
  - BLOOD TEST ABNORMAL [None]
  - PLATELET COUNT DECREASED [None]
  - WHITE BLOOD CELL COUNT DECREASED [None]
